FAERS Safety Report 10869283 (Version 1)
Quarter: 2015Q1

REPORT INFORMATION
  Report Type: Spontaneous
  Country: US (occurrence: US)
  Receive Date: 20150226
  Receipt Date: 20150226
  Transmission Date: 20150721
  Serious: No
  Sender: FDA-Public Use
  Company Number: US-009507513-1502USA008934

PATIENT
  Age: 65 Year
  Sex: Male

DRUGS (2)
  1. BELSOMRA [Suspect]
     Active Substance: SUVOREXANT
     Dosage: TOOK 3 10 MG BELSOMRA TABLETS ALL AT ONCE
     Route: 048
     Dates: start: 20150207, end: 20150208
  2. BELSOMRA [Suspect]
     Active Substance: SUVOREXANT
     Indication: INSOMNIA
     Dosage: 10 MG BELSOMRA TABLET FOLLOWED BY ANOTHER 10 MG BELSOMRA TABLET AN HOUR 1 AFTER
     Route: 048
     Dates: start: 20150206

REACTIONS (3)
  - Drug ineffective [Unknown]
  - Overdose [Unknown]
  - Inappropriate schedule of drug administration [Unknown]

NARRATIVE: CASE EVENT DATE: 20150206
